FAERS Safety Report 9063550 (Version 1)
Quarter: 2013Q1

REPORT INFORMATION
  Report Type: Report from Study
  Country: US (occurrence: US)
  Receive Date: 20130129
  Receipt Date: 20130129
  Transmission Date: 20140127
  Serious: No
  Sender: FDA-Public Use
  Company Number: US-ABBOTT-12P-163-0945148-00

PATIENT
  Sex: Female
  Weight: 85.35 kg

DRUGS (3)
  1. HUMIRA 40 MG/0.8 ML PEN [Suspect]
     Indication: RHEUMATOID ARTHRITIS
     Route: 058
     Dates: start: 201109, end: 201201
  2. HUMIRA 40 MG/0.8 ML PEN [Suspect]
     Route: 058
     Dates: start: 201203
  3. ALLEGRA [Concomitant]
     Indication: ASTHMA

REACTIONS (4)
  - Cough [Unknown]
  - Influenza [Recovered/Resolved]
  - Herpes zoster [Recovered/Resolved]
  - Asthma [Recovered/Resolved]
